FAERS Safety Report 24362818 (Version 1)
Quarter: 2024Q3

REPORT INFORMATION
  Report Type: Spontaneous
  Country: US (occurrence: None)
  Receive Date: 20240924
  Receipt Date: 20240924
  Transmission Date: 20241016
  Serious: Yes (Hospitalization)
  Sender: Public
  Company Number: None

PATIENT
  Age: 29 Year
  Sex: Female

DRUGS (3)
  1. NIFEDIPINE [Suspect]
     Active Substance: NIFEDIPINE
     Indication: Premature labour
     Dosage: 10 MG 3 TIMES A DAY ORAL
     Route: 048
     Dates: start: 20240912, end: 20240914
  2. BETAMETHASONE [Suspect]
     Active Substance: BETAMETHASONE
  3. AUGMENTIN [Suspect]
     Active Substance: AMOXICILLIN\CLAVULANATE POTASSIUM

REACTIONS (11)
  - Dyspnoea [None]
  - Premature labour [None]
  - Erythema [None]
  - Asthenia [None]
  - Urinary tract infection [None]
  - Tachycardia [None]
  - Tremor [None]
  - Anxiety [None]
  - Pulmonary embolism [None]
  - Deep vein thrombosis [None]
  - Exposure during pregnancy [None]

NARRATIVE: CASE EVENT DATE: 20240914
